FAERS Safety Report 19795965 (Version 1)
Quarter: 2021Q3

REPORT INFORMATION
  Report Type: Spontaneous
  Country: US (occurrence: US)
  Receive Date: 20210902
  Receipt Date: 20210902
  Transmission Date: 20211014
  Serious: Yes (Hospitalization)
  Sender: FDA-Public Use
  Company Number: None

PATIENT
  Age: 40 Year
  Sex: Male
  Weight: 92.2 kg

DRUGS (3)
  1. G?CSF (FILGRASTIM, AMGEN) [Suspect]
     Active Substance: FILGRASTIM
     Dates: end: 20210827
  2. TAXOL [Suspect]
     Active Substance: PACLITAXEL
     Dates: end: 20210819
  3. IFOSFAMIDE. [Suspect]
     Active Substance: IFOSFAMIDE
     Dates: end: 20210821

REACTIONS (8)
  - Neutropenia [None]
  - Electrocardiogram QRS complex prolonged [None]
  - White blood cell count decreased [None]
  - Haemoglobin decreased [None]
  - Left ventricular hypertrophy [None]
  - Fall [None]
  - Platelet count decreased [None]
  - Sepsis [None]

NARRATIVE: CASE EVENT DATE: 20210827
